FAERS Safety Report 8791797 (Version 2)
Quarter: 2012Q4

REPORT INFORMATION
  Report Type: Report from Study
  Country: US (occurrence: US)
  Receive Date: 20120918
  Receipt Date: 20121008
  Transmission Date: 20130627
  Serious: Yes (Hospitalization)
  Sender: FDA-Public Use
  Company Number: US-ABBOTT-12P-163-0978402-00

PATIENT
  Sex: Male
  Weight: 119.4 kg

DRUGS (1)
  1. HUMIRA [Suspect]
     Indication: PRODUCT USED FOR UNKNOWN INDICATION
     Dates: end: 201206

REACTIONS (2)
  - Cardiac disorder [Recovered/Resolved]
  - Pulmonary embolism [Recovered/Resolved]
